FAERS Safety Report 7588603-7 (Version None)
Quarter: 2011Q2

REPORT INFORMATION
  Report Type: 
  Country: None (occurrence: None)
  Receive Date: 20110627
  Receipt Date: 20110616
  Transmission Date: 20111010
  Serious: Yes (Death, Hospitalization)
  Sender: FDA-Public Use
  Company Number: 118705

PATIENT
  Age: 74 Year
  Sex: Male

DRUGS (1)
  1. PACLITAXEL [Suspect]
     Indication: STENT PLACEMENT

REACTIONS (3)
  - PULMONARY HAEMORRHAGE [None]
  - ACUTE INTERSTITIAL PNEUMONITIS [None]
  - RESPIRATORY FAILURE [None]
